FAERS Safety Report 10078206 (Version 4)
Quarter: 2014Q2

REPORT INFORMATION
  Report Type: Spontaneous
  Country: IT (occurrence: IT)
  Receive Date: 20140415
  Receipt Date: 20140609
  Transmission Date: 20141212
  Serious: Yes (Hospitalization)
  Sender: FDA-Public Use
  Company Number: IT-ROCHE-1377347

PATIENT
  Age: 53 Year
  Sex: Female
  Weight: 60 kg

DRUGS (7)
  1. VESANOID [Suspect]
     Indication: ACUTE LEUKAEMIA
     Route: 048
     Dates: start: 20131212, end: 20140111
  2. ACICLOVIR [Concomitant]
     Indication: ANTIVIRAL PROPHYLAXIS
     Route: 048
  3. LAMIVUDINE [Concomitant]
     Indication: ANTIVIRAL PROPHYLAXIS
     Route: 048
  4. RAMIPRIL [Concomitant]
     Indication: HYPOTENSION
     Route: 048
  5. AMLODIPINE BESILATE [Concomitant]
     Indication: HYPOTENSION
     Route: 048
  6. CATAPRESAN [Concomitant]
     Indication: HYPOTENSION
     Route: 062
  7. URBASON [Concomitant]
     Route: 040

REACTIONS (2)
  - Hepatitis acute [Recovered/Resolved]
  - Myopathy [Recovered/Resolved]
